FAERS Safety Report 6026397-7 (Version None)
Quarter: 2009Q1

REPORT INFORMATION
  Report Type: 
  Country: None (occurrence: None)
  Receive Date: 20090102
  Receipt Date: 20081226
  Transmission Date: 20090719
  Serious: Yes (Hospitalization)
  Sender: FDA-Public Use
  Company Number: PHHY2008JP32476

PATIENT
  Age: 69 Year
  Sex: Female

DRUGS (2)
  1. ZOMETA [Suspect]
     Indication: METASTASES TO BONE
  2. AREDIA [Suspect]
     Indication: METASTASES TO BONE

REACTIONS (8)
  - ABSCESS [None]
  - ABSCESS DRAINAGE [None]
  - BONE DISORDER [None]
  - DECUBITUS ULCER [None]
  - OSTEONECROSIS [None]
  - PRIMARY SEQUESTRUM [None]
  - SEQUESTRECTOMY [None]
  - SWELLING [None]
